FAERS Safety Report 6556829-7 (Version None)
Quarter: 2010Q1

REPORT INFORMATION
  Report Type: 
  Country: None (occurrence: None)
  Receive Date: 20100128
  Receipt Date: 20100120
  Transmission Date: 20100710
  Serious: Yes (Hospitalization)
  Sender: FDA-Public Use
  Company Number: PHHO2010US01243

PATIENT
  Sex: Male
  Weight: 27.5 kg

DRUGS (2)
  1. ACZ885 ACZ+ [Suspect]
     Indication: CHRONIC INFANTILE NEUROLOGICAL CUTANEOUS AND ARTICULAR SYNDROME
     Dosage: 222 MG (8 MG/KG)
     Route: 058
     Dates: start: 20090714
  2. DIAMOX SRC [Concomitant]
     Indication: INTRACRANIAL PRESSURE INCREASED

REACTIONS (4)
  - ABSCESS [None]
  - ABSCESS DRAINAGE [None]
  - CELLULITIS STAPHYLOCOCCAL [None]
  - PYREXIA [None]
